FAERS Safety Report 23665592 (Version 1)
Quarter: 2024Q1

REPORT INFORMATION
  Report Type: Spontaneous
  Country: US (occurrence: US)
  Receive Date: 20240323
  Receipt Date: 20240323
  Transmission Date: 20240410
  Serious: No
  Sender: FDA-Public Use
  Company Number: US-ABBVIE-5685518

PATIENT
  Age: 53 Year
  Sex: Male
  Weight: 83.914 kg

DRUGS (5)
  1. HUMIRA [Suspect]
     Active Substance: ADALIMUMAB
     Indication: Psoriatic arthropathy
     Dosage: FORM STRENGTH: 40MG
     Route: 058
     Dates: start: 202402
  2. OMEGA 3 [Concomitant]
     Active Substance: CAPSAICIN
     Indication: Nutritional supplementation
  3. VITAMIN D3 [Concomitant]
     Active Substance: CHOLECALCIFEROL
     Indication: Vitamin supplementation
  4. MENAQUINONE 6 [Concomitant]
     Active Substance: MENAQUINONE 6
     Indication: Vitamin supplementation
  5. FISH OIL [Concomitant]
     Active Substance: FISH OIL
     Indication: Nutritional supplementation

REACTIONS (3)
  - Fatigue [Recovering/Resolving]
  - Wrong technique in product usage process [Not Recovered/Not Resolved]
  - Arthralgia [Recovering/Resolving]

NARRATIVE: CASE EVENT DATE: 20240316
